FAERS Safety Report 4461647-X (Version None)
Quarter: 2004Q3

REPORT INFORMATION
  Report Type: 
  Country: None (occurrence: None)
  Receive Date: 20040924
  Receipt Date: 20040924
  Transmission Date: 20050211
  Serious: Yes (Hospitalization)
  Sender: FDA-Public Use
  Company Number: None

PATIENT
  Age: 81 Year
  Sex: Male
  Weight: 92 kg

DRUGS (9)
  1. WARFARIN SODIUM [Suspect]
     Indication: ATRIAL FIBRILLATION
     Dosage: VARIED QD ORAL
     Route: 048
     Dates: start: 20021021, end: 20031231
  2. TERAZOCIN [Concomitant]
  3. LISINOPRIL [Concomitant]
  4. ISOSORBIDE [Concomitant]
  5. LASIX [Concomitant]
  6. HYDROXYZINE [Concomitant]
  7. ALBUTEROL [Concomitant]
  8. VIT E [Concomitant]
  9. STRESSTABS WITH ZINC [Concomitant]

REACTIONS (9)
  - ASTHENIA [None]
  - CHEST PAIN [None]
  - DYSPNOEA [None]
  - FAECAL OCCULT BLOOD POSITIVE [None]
  - FEELING ABNORMAL [None]
  - HAEMATOCRIT DECREASED [None]
  - HAEMOGLOBIN DECREASED [None]
  - INTERNATIONAL NORMALISED RATIO INCREASED [None]
  - PROTHROMBIN TIME PROLONGED [None]
